FAERS Safety Report 13727331 (Version 2)
Quarter: 2017Q3

REPORT INFORMATION
  Report Type: Other
  Country: GB (occurrence: PL)
  Receive Date: 20170706
  Receipt Date: 20170714
  Transmission Date: 20171127
  Serious: Yes (Other)
  Sender: FDA-Public Use
  Company Number: PL-INTERNATIONAL MEDICATION SYSTEMS, LIMITED-2023042

PATIENT
  Age: 58 Year
  Sex: Female

DRUGS (2)
  1. EPINEPHRINE. [Suspect]
     Active Substance: EPINEPHRINE
     Indication: CARDIAC ARREST
     Route: 042
  2. ATROPINE. [Concomitant]
     Active Substance: ATROPINE

REACTIONS (1)
  - Stress cardiomyopathy [Recovered/Resolved]
